FAERS Safety Report 23753257 (Version 1)
Quarter: 2024Q2

REPORT INFORMATION
  Report Type: Spontaneous
  Country: US (occurrence: None)
  Receive Date: 20240417
  Receipt Date: 20240417
  Transmission Date: 20240715
  Serious: Yes (Life-Threatening)
  Sender: FDA-Public Use
  Company Number: None

PATIENT
  Age: 85 Year
  Sex: Male
  Weight: 53.5 kg

DRUGS (1)
  1. EMPAGLIFLOZIN [Suspect]
     Active Substance: EMPAGLIFLOZIN
     Indication: Cardiac failure
     Dosage: 12.5 MG DAILY ORAL
     Route: 048
     Dates: start: 20231217, end: 20231219

REACTIONS (1)
  - Hypoglycaemia [None]

NARRATIVE: CASE EVENT DATE: 20231219
